FAERS Safety Report 9651920 (Version 1)
Quarter: 2013Q4

REPORT INFORMATION
  Report Type: Report from Study
  Country: CA (occurrence: CA)
  Receive Date: 20131029
  Receipt Date: 20131029
  Transmission Date: 20140711
  Serious: Yes (Other)
  Sender: FDA-Public Use
  Company Number: CA-BAYER-2013-130724

PATIENT
  Age: 37 Year
  Sex: Male

DRUGS (2)
  1. EXTAVIA [Suspect]
     Indication: RELAPSING-REMITTING MULTIPLE SCLEROSIS
     Dosage: UNK
     Route: 065
     Dates: start: 201304, end: 201310
  2. BETASERON [Suspect]
     Indication: RELAPSING-REMITTING MULTIPLE SCLEROSIS
     Dosage: UNK
     Route: 065
     Dates: start: 200907, end: 201304

REACTIONS (4)
  - Multiple sclerosis relapse [None]
  - Aphasia [None]
  - Nuclear magnetic resonance imaging abnormal [None]
  - Antibody test positive [None]
